FAERS Safety Report 23072557 (Version 2)
Quarter: 2023Q4

REPORT INFORMATION
  Report Type: Spontaneous
  Country: DE (occurrence: DE)
  Receive Date: 20231017
  Receipt Date: 20231023
  Transmission Date: 20240110
  Serious: Yes (Hospitalization)
  Sender: FDA-Public Use
  Company Number: DE-ABBVIE-5452653

PATIENT
  Age: 22 Year
  Sex: Female

DRUGS (3)
  1. RINVOQ [Suspect]
     Active Substance: UPADACITINIB
     Indication: Rheumatoid arthritis
     Dosage: FORM STRENGTH: 15 MILLIGRAM
     Route: 048
     Dates: start: 20230922, end: 20230927
  2. HYDROXYCHLOROQUINE [Concomitant]
     Active Substance: HYDROXYCHLOROQUINE
     Indication: Overlap syndrome
     Route: 048
     Dates: end: 20230927
  3. PREDNISOLONE [Suspect]
     Active Substance: PREDNISOLONE
     Indication: Rheumatoid arthritis
     Route: 048
     Dates: start: 2022

REACTIONS (3)
  - Sepsis [Not Recovered/Not Resolved]
  - Meningitis [Recovered/Resolved]
  - Epstein-Barr virus infection reactivation [Not Recovered/Not Resolved]

NARRATIVE: CASE EVENT DATE: 20230927
